FAERS Safety Report 13626267 (Version 1)
Quarter: 2017Q2

REPORT INFORMATION
  Report Type: Spontaneous
  Country: US (occurrence: US)
  Receive Date: 20170608
  Receipt Date: 20170608
  Transmission Date: 20170830
  Serious: No
  Sender: FDA-Public Use
  Company Number: US-GLAXOSMITHKLINE-US2017GSK087439

PATIENT
  Age: 32 Year
  Sex: Female
  Weight: 97 kg

DRUGS (1)
  1. CAMBIA [Suspect]
     Active Substance: DICLOFENAC POTASSIUM
     Indication: MIGRAINE
     Dosage: UNK
     Route: 048
     Dates: start: 20170515, end: 20170515

REACTIONS (3)
  - Drug effect incomplete [Unknown]
  - Nausea [Unknown]
  - Abdominal pain upper [Unknown]
